FAERS Safety Report 16725779 (Version 3)
Quarter: 2020Q1

REPORT INFORMATION
  Report Type: Report from Study
  Country: CA (occurrence: CA)
  Receive Date: 20190821
  Receipt Date: 20200124
  Transmission Date: 20200409
  Serious: Yes (Hospitalization, Other)
  Sender: FDA-Public Use
  Company Number: PHHY2013CA096991

PATIENT
  Age: 38 Year
  Sex: Male

DRUGS (2)
  1. SANDOSTATIN LAR DEPOT [Suspect]
     Active Substance: OCTREOTIDE ACETATE
     Dosage: 30 MG, Q3W
     Route: 030
  2. SANDOSTATIN LAR DEPOT [Suspect]
     Active Substance: OCTREOTIDE ACETATE
     Indication: NEUROENDOCRINE TUMOUR
     Dosage: 30 MG, QMO (EVERY 4 WEEKS)
     Route: 030
     Dates: start: 20130508

REACTIONS (24)
  - Sluggishness [Unknown]
  - Sepsis [Unknown]
  - Wound infection [Unknown]
  - Body temperature decreased [Unknown]
  - Malignant neoplasm progression [Unknown]
  - Post procedural complication [Unknown]
  - Malaise [Unknown]
  - Fatigue [Unknown]
  - Duodenal ulcer haemorrhage [Unknown]
  - Pulmonary embolism [Unknown]
  - Abdominal discomfort [Unknown]
  - Delirium [Unknown]
  - Abdominal abscess [Unknown]
  - Weight decreased [Unknown]
  - Pain [Unknown]
  - Heart rate decreased [Unknown]
  - Inappropriate schedule of product administration [Unknown]
  - Abdominal distension [Unknown]
  - Pancreatic neoplasm [Unknown]
  - Inguinal hernia [Unknown]
  - Abdominal pain upper [Unknown]
  - Haematemesis [Unknown]
  - Intestinal obstruction [Recovered/Resolved]
  - Blood pressure increased [Unknown]

NARRATIVE: CASE EVENT DATE: 20140130
